FAERS Safety Report 4401156-7 (Version None)
Quarter: 2004Q3

REPORT INFORMATION
  Report Type: 
  Country: None (occurrence: None)
  Receive Date: 20040907
  Receipt Date: 20031121
  Transmission Date: 20050211
  Serious: Yes (Death, Hospitalization)
  Sender: FDA-Public Use
  Company Number: US-BRISTOL-MYERS SQUIBB COMPANY-12441796

PATIENT
  Sex: Male

DRUGS (1)
  1. COUMADIN [Suspect]

REACTIONS (4)
  - BLOOD URINE [None]
  - DRUG TOXICITY [None]
  - MEDICATION ERROR [None]
  - RESPIRATORY TRACT HAEMORRHAGE [None]
